FAERS Safety Report 5400260-4 (Version None)
Quarter: 2007Q3

REPORT INFORMATION
  Report Type: 
  Country: None (occurrence: None)
  Receive Date: 20070730
  Receipt Date: 20070718
  Transmission Date: 20080115
  Serious: Yes (Other)
  Sender: FDA-Public Use
  Company Number: ZA-ROCHE-497262

PATIENT
  Age: 39 Year
  Sex: Male

DRUGS (4)
  1. PEGASYS [Suspect]
     Indication: HEPATITIS C
     Route: 042
     Dates: start: 20070205, end: 20070512
  2. COPEGUS [Suspect]
     Indication: HEPATITIS C
     Route: 048
     Dates: start: 20070205, end: 20070512
  3. DICLOFENAC SODIUM [Concomitant]
     Indication: INTERVERTEBRAL DISC DISORDER
     Dosage: REGIMEN REPORTED AS OCCASIONAL.
     Route: 048
  4. ORPHENADRINE CITRATE [Concomitant]
     Dosage: REGIMEN REPORTED AS OCCASIONAL.

REACTIONS (2)
  - EPILEPSY [None]
  - HYPERTHYROIDISM [None]
